FAERS Safety Report 8977943 (Version 4)
Quarter: 2013Q4

REPORT INFORMATION
  Report Type: Spontaneous
  Country: US (occurrence: US)
  Receive Date: 20121219
  Receipt Date: 20131114
  Transmission Date: 20140711
  Serious: Yes (Hospitalization, Other)
  Sender: FDA-Public Use
  Company Number: US-009507513-1212USA006883

PATIENT
  Sex: Female
  Weight: 70.3 kg

DRUGS (18)
  1. FOSAMAX [Suspect]
     Indication: OSTEOPOROSIS
     Dosage: 70 MG, QW
     Route: 048
     Dates: start: 20030110
  2. FOSAMAX [Suspect]
     Indication: OSTEOPOROSIS
     Route: 048
  3. ALENDRONATE SODIUM [Suspect]
     Indication: OSTEOPOROSIS
     Dosage: 70 MG, UNK
     Route: 048
     Dates: start: 20080423, end: 20101220
  4. CALCIUM (UNSPECIFIED) (+) VITAMIN D (UNSPECIFIED) [Concomitant]
     Dosage: 600 MG, TID
     Dates: start: 1992
  5. CALCIUM (UNSPECIFIED) (+) VITAMIN D (UNSPECIFIED) [Concomitant]
     Dosage: 1000 MG, QD
  6. CALCIUM (UNSPECIFIED) (+) VITAMIN D (UNSPECIFIED) [Concomitant]
     Dosage: 1500 MG, QD
  7. VITAMINS (UNSPECIFIED) [Concomitant]
     Dosage: 2000 IU QD
     Dates: start: 1992
  8. ASCORBIC ACID [Concomitant]
     Dosage: 1000 MG QD
     Dates: start: 1992
  9. LEVOTHYROXINE SODIUM [Concomitant]
     Indication: HYPOTHYROIDISM
     Dosage: UNK
     Dates: start: 1965
  10. TRAZODONE HYDROCHLORIDE [Concomitant]
     Indication: INSOMNIA
     Dosage: 50 MG, HS
     Route: 048
     Dates: start: 1995
  11. ZYRTEC [Concomitant]
     Indication: RHINITIS ALLERGIC
     Dosage: 10 MG, HS
     Route: 048
     Dates: start: 1998
  12. PREMARIN [Concomitant]
     Dosage: 0.625 MG
  13. ESTROGENS (UNSPECIFIED) [Concomitant]
     Dosage: UNK
     Dates: start: 1986
  14. FLONASE [Concomitant]
     Indication: RHINITIS ALLERGIC
     Dosage: 50 MICROGRAM, BID
     Route: 045
  15. MONOPRIL [Concomitant]
     Indication: HYPERTENSION
     Dosage: 10 MG, UNK
  16. SYNTHROID [Concomitant]
     Indication: HYPOTHYROIDISM
     Dosage: 125 MICROGRAM, QD
     Route: 048
  17. HYDROCHLOROTHIAZIDE [Concomitant]
     Indication: HYPERTENSION
     Dosage: 25 MG, QD
     Route: 048
  18. LOMOTIL (ATROPINE SULFATE (+) DIPHENOXYLATE HYDROCHLORIDE) [Concomitant]
     Dosage: 2.5 MG, PRN
     Route: 048

REACTIONS (31)
  - Femur fracture [Unknown]
  - Intramedullary rod insertion [Unknown]
  - Cholecystectomy [Unknown]
  - Breast prosthesis removal [Unknown]
  - Breast prosthesis implantation [Unknown]
  - Surgery [Unknown]
  - Cellulitis [Recovering/Resolving]
  - Animal bite [Recovering/Resolving]
  - Femur fracture [Unknown]
  - Low turnover osteopathy [Unknown]
  - Fibula fracture [Unknown]
  - Blood cholesterol increased [Unknown]
  - Bunion operation [Unknown]
  - Blood pressure increased [Unknown]
  - Myositis ossificans [Unknown]
  - Hand fracture [Unknown]
  - Cardiac murmur [Unknown]
  - Arteriosclerosis coronary artery [Unknown]
  - Neuroma [Unknown]
  - Foot operation [Unknown]
  - Varicose vein [Unknown]
  - Device failure [Unknown]
  - Fall [Unknown]
  - Contusion [Unknown]
  - Local swelling [Unknown]
  - Osteoarthritis [Unknown]
  - Aortic arteriosclerosis [Unknown]
  - Intervertebral disc protrusion [Unknown]
  - Muscular weakness [Unknown]
  - Pain in extremity [Unknown]
  - Diarrhoea [Unknown]
